FAERS Safety Report 4643095-2 (Version None)
Quarter: 2005Q2

REPORT INFORMATION
  Report Type: 
  Country: None (occurrence: None)
  Receive Date: 20050422
  Receipt Date: 20050217
  Transmission Date: 20051028
  Serious: Yes (Other)
  Sender: FDA-Public Use
  Company Number: 2004120057

PATIENT
  Age: 86 Year
  Sex: Female
  Weight: 56.6996 kg

DRUGS (2)
  1. CELEBREX [Suspect]
     Indication: OSTEOARTHRITIS
     Dosage: 200 MG (20 MG, 1 IN 1 D), ORAL
     Route: 048
  2. ALENDRONATE SODIUM [Concomitant]

REACTIONS (7)
  - BLOOD PRESSURE SYSTOLIC INCREASED [None]
  - JOINT DISLOCATION POSTOPERATIVE [None]
  - JOINT RANGE OF MOTION DECREASED [None]
  - MEDICAL DEVICE COMPLICATION [None]
  - PAIN [None]
  - PAIN IN EXTREMITY [None]
  - TREATMENT NONCOMPLIANCE [None]
